FAERS Safety Report 7754344-6 (Version None)
Quarter: 2011Q3

REPORT INFORMATION
  Report Type: 
  Country: None (occurrence: None)
  Receive Date: 20110915
  Receipt Date: 20110909
  Transmission Date: 20111222
  Serious: Yes (Hospitalization)
  Sender: FDA-Public Use
  Company Number: JP-SP-2010-07127

PATIENT
  Sex: Male

DRUGS (4)
  1. IMMUCYST [Suspect]
     Indication: BLADDER CANCER
     Route: 043
     Dates: start: 20101012, end: 20101130
  2. GLIMEPIRIDE [Concomitant]
  3. METFORMIN HCL [Concomitant]
  4. ROSUVASTATIN CALCIUM [Concomitant]

REACTIONS (6)
  - PROSTATIC ABSCESS [None]
  - INFLAMMATION [None]
  - POLLAKIURIA [None]
  - BOVINE TUBERCULOSIS [None]
  - DYSURIA [None]
  - PYREXIA [None]
